FAERS Safety Report 23930223 (Version 1)
Quarter: 2024Q2

REPORT INFORMATION
  Report Type: Spontaneous
  Country: US (occurrence: US)
  Receive Date: 20240602
  Receipt Date: 20240602
  Transmission Date: 20240716
  Serious: Yes (Other)
  Sender: FDA-Public Use
  Company Number: US-AUROBINDO-AUR-APL-2024-026427

PATIENT
  Age: 51 Year
  Sex: Male

DRUGS (5)
  1. MYCOPHENOLIC ACID [Suspect]
     Active Substance: MYCOPHENOLIC ACID
     Indication: Cystitis haemorrhagic
     Dosage: UNK
     Route: 065
  2. TACROLIMUS [Suspect]
     Active Substance: TACROLIMUS
     Indication: Cystitis haemorrhagic
     Dosage: UNK
     Route: 065
  3. THYMOGLOBULIN [Suspect]
     Active Substance: LAPINE T-LYMPHOCYTE IMMUNE GLOBULIN
     Indication: Cystitis haemorrhagic
     Dosage: UNK
     Route: 065
  4. CIDOFOVIR [Concomitant]
     Active Substance: CIDOFOVIR
     Indication: Cystitis haemorrhagic
     Dosage: UNK
     Route: 042
  5. CIDOFOVIR [Concomitant]
     Active Substance: CIDOFOVIR
     Dosage: UNK

REACTIONS (1)
  - Drug ineffective [Unknown]
